FAERS Safety Report 8194652-0 (Version None)
Quarter: 2012Q1

REPORT INFORMATION
  Report Type: 
  Country: None (occurrence: None)
  Receive Date: 20120308
  Receipt Date: 20111219
  Transmission Date: 20120608
  Serious: No
  Sender: FDA-Public Use
  Company Number: US-GLAXOSMITHKLINE-A0958605A

PATIENT
  Age: 55 Year
  Sex: Female

DRUGS (2)
  1. NICORETTE [Suspect]
     Indication: EX-TOBACCO USER
     Dates: start: 20111001
  2. NICODERM CQ [Suspect]
     Indication: EX-TOBACCO USER
     Dates: start: 20010101

REACTIONS (8)
  - DIZZINESS [None]
  - DRUG INEFFECTIVE [None]
  - DYSPEPSIA [None]
  - HYPERHIDROSIS [None]
  - NAUSEA [None]
  - RESPIRATORY RATE INCREASED [None]
  - THROAT IRRITATION [None]
  - PALPITATIONS [None]
